FAERS Safety Report 4692891-4 (Version None)
Quarter: 2005Q2

REPORT INFORMATION
  Report Type: 
  Country: None (occurrence: None)
  Receive Date: 20050615
  Receipt Date: 20050601
  Transmission Date: 20051028
  Serious: Yes (Death, Life-Threatening)
  Sender: FDA-Public Use
  Company Number: EWC050644292

PATIENT
  Sex: Male

DRUGS (7)
  1. XIGRIS [Suspect]
     Dosage: 24 UG/KG/HR
  2. NEXIUM [Concomitant]
  3. VASOPRESSIN INJECTION [Concomitant]
  4. SOLU-CORTEL (HYDRCORTISONE SODIUM SUCCINATE) [Concomitant]
  5. EPINEPHRINE [Concomitant]
  6. ZINACEF [Concomitant]
  7. ERY-MAX (ERYTHROMYCIN      /00020901/) [Concomitant]

REACTIONS (9)
  - ADVERSE DRUG REACTION [None]
  - CONDITION AGGRAVATED [None]
  - EPISTAXIS [None]
  - MEDICAL DEVICE COMPLICATION [None]
  - OBSTRUCTION [None]
  - PHARYNGEAL HAEMORRHAGE [None]
  - PNEUMOTHORAX [None]
  - RESPIRATORY DISORDER [None]
  - THROMBOSIS [None]
